FAERS Safety Report 6077746-5 (Version None)
Quarter: 2009Q1

REPORT INFORMATION
  Report Type: 
  Country: None (occurrence: None)
  Receive Date: 20090213
  Receipt Date: 20090212
  Transmission Date: 20090719
  Serious: Yes (Death, Other)
  Sender: FDA-Public Use
  Company Number: PHEH2008US10260

PATIENT
  Sex: Male

DRUGS (3)
  1. CLOZARIL [Suspect]
  2. ABILIFY [Concomitant]
  3. ZOLOFT [Concomitant]

REACTIONS (4)
  - ARRHYTHMIA [None]
  - CARDIAC ARREST [None]
  - DYSPHAGIA [None]
  - PNEUMONIA STAPHYLOCOCCAL [None]
